FAERS Safety Report 18447897 (Version 1)
Quarter: 2020Q4

REPORT INFORMATION
  Report Type: Spontaneous
  Country: US (occurrence: US)
  Receive Date: 20201030
  Receipt Date: 20201030
  Transmission Date: 20210114
  Serious: No
  Sender: FDA-Public Use
  Company Number: US-UPSHER-SMITH LABORATORIES, LLC-2020USL00412

PATIENT

DRUGS (1)
  1. JANTOVEN [Suspect]
     Active Substance: WARFARIN SODIUM

REACTIONS (3)
  - Blister [Unknown]
  - International normalised ratio abnormal [Unknown]
  - Contusion [Unknown]

NARRATIVE: CASE EVENT DATE: 202007
